FAERS Safety Report 23341015 (Version 1)
Quarter: 2023Q4

REPORT INFORMATION
  Report Type: Spontaneous
  Country: US (occurrence: None)
  Receive Date: 20231227
  Receipt Date: 20231227
  Transmission Date: 20240109
  Serious: No
  Sender: FDA-Public Use
  Company Number: 2023A279777

PATIENT

DRUGS (2)
  1. FASENRA [Suspect]
     Active Substance: BENRALIZUMAB
     Route: 058
  2. HUMIRA [Concomitant]
     Active Substance: ADALIMUMAB

REACTIONS (2)
  - Heart rate increased [Unknown]
  - Blood pressure increased [Unknown]
